FAERS Safety Report 25326883 (Version 1)
Quarter: 2025Q2

REPORT INFORMATION
  Report Type: Report from Study
  Country: US (occurrence: US)
  Receive Date: 20250516
  Receipt Date: 20250516
  Transmission Date: 20250717
  Serious: Yes (Hospitalization, Other)
  Sender: BOEHRINGER INGELHEIM
  Company Number: US-BoehringerIngelheim-2025-BI-028263

PATIENT
  Age: 68 Year
  Sex: Female

DRUGS (16)
  1. SYNJARDY [Suspect]
     Active Substance: EMPAGLIFLOZIN\METFORMIN HYDROCHLORIDE
     Indication: Product used for unknown indication
  2. TIRZEPATIDE [Suspect]
     Active Substance: TIRZEPATIDE
     Indication: Type 2 diabetes mellitus
     Dates: start: 20240916
  3. TIRZEPATIDE [Suspect]
     Active Substance: TIRZEPATIDE
     Dates: start: 20241007, end: 20241125
  4. TIRZEPATIDE [Suspect]
     Active Substance: TIRZEPATIDE
  5. KLOR-CON M10 (POTASSIUM CHLORIDE) [Concomitant]
     Indication: Product used for unknown indication
  6. PROTONIX [PANTOPRAZOLE SODIUM SESQUIHYDRATE] (PANTOPRAZOLE SODIUM SESQ [Concomitant]
     Indication: Product used for unknown indication
     Dates: start: 20241203, end: 20250409
  7. FLORAJEN 3 (BIFIDOBACTERIUM LACTIS, BIFIDOBACTERIUM LONGUM, LACTOBACIL [Concomitant]
     Indication: Product used for unknown indication
  8. UROCIT K (POTASSIUM CITRATE) [Concomitant]
     Indication: Product used for unknown indication
  9. NOVOLOG [Concomitant]
     Active Substance: INSULIN ASPART
     Indication: Product used for unknown indication
     Dates: start: 20241203, end: 20250108
  10. COLACE [Concomitant]
     Active Substance: DOCUSATE SODIUM
     Indication: Product used for unknown indication
     Dates: start: 20241203, end: 20250409
  11. ZYLOPRIM (ALLOPURINOL) [Concomitant]
     Indication: Product used for unknown indication
  12. LIPITOR [Concomitant]
     Active Substance: ATORVASTATIN CALCIUM
     Indication: Product used for unknown indication
     Dates: start: 20240228, end: 20250108
  13. PRINZIDE (HYDROCHLOROTHIAZIDE, LISINOPRIL DIHYDRATE) [Concomitant]
     Indication: Product used for unknown indication
  14. ZESTORETIC (HYDROCHLOROTHIAZIDE, LISINOPRIL) [Concomitant]
     Indication: Product used for unknown indication
  15. LOPRESSOR [Concomitant]
     Active Substance: METOPROLOL TARTRATE
     Indication: Product used for unknown indication
  16. TYLENOL [Concomitant]
     Active Substance: ACETAMINOPHEN
     Indication: Product used for unknown indication

REACTIONS (6)
  - Fournier^s gangrene [Recovered/Resolved]
  - Sepsis [Unknown]
  - Multiple organ dysfunction syndrome [Unknown]
  - Acute kidney injury [Recovered/Resolved]
  - Hyperglycaemia [Unknown]
  - Hypokalaemia [Recovered/Resolved]

NARRATIVE: CASE EVENT DATE: 20241101
